FAERS Safety Report 11291888 (Version 2)
Quarter: 2015Q3

REPORT INFORMATION
  Report Type: Spontaneous
  Country: US (occurrence: US)
  Receive Date: 20150722
  Receipt Date: 20150831
  Transmission Date: 20151125
  Serious: Yes (Hospitalization)
  Sender: FDA-Public Use
  Company Number: US-PFIZER INC-2015239716

PATIENT
  Age: 67 Year
  Sex: Male

DRUGS (1)
  1. TIKOSYN [Suspect]
     Active Substance: DOFETILIDE
     Indication: ARRHYTHMIA
     Dosage: 250 ?G, 2X/DAY
     Dates: start: 201110

REACTIONS (2)
  - Cerebrovascular accident [Recovered/Resolved with Sequelae]
  - Circulatory collapse [Unknown]

NARRATIVE: CASE EVENT DATE: 20150224
